FAERS Safety Report 6003205-1 (Version None)
Quarter: 2008Q4

REPORT INFORMATION
  Report Type: 
  Country: None (occurrence: None)
  Receive Date: 20081212
  Receipt Date: 20081212
  Transmission Date: 20090506
  Serious: Yes (Hospitalization)
  Sender: FDA-Public Use
  Company Number: None

PATIENT
  Age: 82 Year
  Sex: Male
  Weight: 67 kg

DRUGS (2)
  1. NIFEDIPINE [Suspect]
     Indication: HYPERTENSION
     Dosage: 30 MG EVERY DAY PO
     Route: 048
     Dates: start: 20081113, end: 20081208
  2. TERAZOSIN HCL [Suspect]
     Indication: HYPERTENSION
     Dosage: 4 MG HS PO
     Route: 048
     Dates: start: 20081202, end: 20081208

REACTIONS (1)
  - HYPOTENSION [None]
